FAERS Safety Report 6148182-8 (Version None)
Quarter: 2009Q2

REPORT INFORMATION
  Report Type: 
  Country: None (occurrence: None)
  Receive Date: 20090408
  Receipt Date: 20090330
  Transmission Date: 20091009
  Serious: Yes (Other)
  Sender: FDA-Public Use
  Company Number: IR-PFIZER INC-2009190426

PATIENT

DRUGS (1)
  1. MISOPROSTOL [Suspect]
     Indication: ABORTION

REACTIONS (3)
  - GESTATIONAL TROPHOBLASTIC TUMOUR [None]
  - METASTASES TO LIVER [None]
  - OFF LABEL USE [None]
